FAERS Safety Report 18167418 (Version 1)
Quarter: 2020Q3

REPORT INFORMATION
  Report Type: Spontaneous
  Country: US (occurrence: US)
  Receive Date: 20200818
  Receipt Date: 20200818
  Transmission Date: 20201103
  Serious: No
  Sender: FDA-Public Use
  Company Number: US-OTSUKA-2019_040947

PATIENT
  Sex: Female
  Weight: 92 kg

DRUGS (2)
  1. ABILIFY [Suspect]
     Active Substance: ARIPIPRAZOLE
     Indication: DEPRESSION
     Dosage: UNK
     Route: 065
     Dates: start: 2014, end: 201907
  2. ABILIFY MAINTENA [Suspect]
     Active Substance: ARIPIPRAZOLE
     Indication: DEPRESSION
     Dosage: 300 MG, QM (EVERY 30 DAYS)
     Route: 065

REACTIONS (4)
  - Homeless [Unknown]
  - Prescribed underdose [Unknown]
  - Gambling disorder [Unknown]
  - Compulsive sexual behaviour [Unknown]

NARRATIVE: CASE EVENT DATE: 2014
